FAERS Safety Report 8013447-1 (Version None)
Quarter: 2011Q4

REPORT INFORMATION
  Report Type: 
  Country: None (occurrence: None)
  Receive Date: 20111229
  Receipt Date: 20111222
  Transmission Date: 20120403
  Serious: Yes (Other)
  Sender: FDA-Public Use
  Company Number: JP-PFIZER INC-2011310951

PATIENT
  Age: 21 Year
  Sex: Female

DRUGS (1)
  1. SULFASALAZINE [Suspect]
     Dosage: 500 MG, DAILY
     Dates: start: 20101101, end: 20110201

REACTIONS (1)
  - ERYTHEMA MULTIFORME [None]
